FAERS Safety Report 8421690-2 (Version None)
Quarter: 2012Q2

REPORT INFORMATION
  Report Type: 
  Country: None (occurrence: None)
  Receive Date: 20120323
  Receipt Date: 20111214
  Transmission Date: 20120825
  Serious: Yes (Other)
  Sender: FDA-Public Use
  Company Number: 163-21880-11122295

PATIENT
  Age: 78 Year
  Sex: Female

DRUGS (4)
  1. CYANOCOBALAMIN [Concomitant]
  2. DILTIAZEM [Concomitant]
  3. LENALIDOMIDE [Suspect]
     Indication: MULTIPLE MYELOMA
     Dosage: 15 MG, DAILY X 21D/28D, PO
     Route: 048
     Dates: start: 20100801, end: 20111101
  4. ASPIRIN [Concomitant]

REACTIONS (1)
  - NEUTROPHIL COUNT DECREASED [None]
